FAERS Safety Report 24435575 (Version 2)
Quarter: 2024Q4

REPORT INFORMATION
  Report Type: Spontaneous
  Country: US (occurrence: US)
  Receive Date: 20241015
  Receipt Date: 20241030
  Transmission Date: 20250114
  Serious: Yes (Hospitalization, Other)
  Sender: NOVO NORDISK
  Company Number: US-NOVOPROD-1295656

PATIENT
  Age: 61 Year
  Sex: Male

DRUGS (5)
  1. INSULIN ASPART PROTAMINE AND INSULIN ASPART [Suspect]
     Active Substance: INSULIN ASPART
     Dosage: UNK
     Route: 058
  2. INSULIN ASPART PROTAMINE AND INSULIN ASPART [Suspect]
     Active Substance: INSULIN ASPART
     Indication: Type 2 diabetes mellitus
     Dosage: 19 UNITS IN THE MORNING AND 13 AT NIGHT
     Route: 058
  3. METOPROLOL TARTRATE [Concomitant]
     Active Substance: METOPROLOL TARTRATE
     Indication: Product used for unknown indication
     Dosage: 25 MG IN THE MORNING
     Route: 048
     Dates: start: 20240401
  4. AMLODIPINE BESYLATE [Concomitant]
     Active Substance: AMLODIPINE BESYLATE
     Indication: Product used for unknown indication
     Dosage: IN THE MORNING
     Route: 048
     Dates: start: 20240401
  5. ATORVASTATIN [Concomitant]
     Active Substance: ATORVASTATIN
     Indication: Product used for unknown indication
     Dosage: AT NIGHT
     Route: 048
     Dates: start: 20240401

REACTIONS (2)
  - Cyst rupture [Recovered/Resolved]
  - Gangrene [Recovered/Resolved]

NARRATIVE: CASE EVENT DATE: 20240224
